FAERS Safety Report 4959063-7 (Version None)
Quarter: 2006Q1

REPORT INFORMATION
  Report Type: 
  Country: None (occurrence: None)
  Receive Date: 20060331
  Receipt Date: 20051001
  Transmission Date: 20060701
  Serious: Yes (Other)
  Sender: FDA-Public Use
  Company Number: 2006UW01101

PATIENT
  Age: 57 Year
  Sex: Female

DRUGS (1)
  1. NOLVADEX [Suspect]
     Indication: BREAST CANCER FEMALE
     Route: 048

REACTIONS (5)
  - CYSTOCELE [None]
  - RECTOCELE [None]
  - STRESS INCONTINENCE [None]
  - UTERINE HAEMORRHAGE [None]
  - UTERINE PROLAPSE [None]
